FAERS Safety Report 11135903 (Version 1)
Quarter: 2015Q2

REPORT INFORMATION
  Report Type: Spontaneous
  Country: FR (occurrence: FR)
  Receive Date: 20150526
  Receipt Date: 20150526
  Transmission Date: 20150821
  Serious: Yes (Life-Threatening, Hospitalization)
  Sender: FDA-Public Use
  Company Number: FR-PFIZER INC-2015174242

PATIENT
  Age: 50 Year
  Sex: Female

DRUGS (3)
  1. LUTENYL [Suspect]
     Active Substance: NOMEGESTROL ACETATE
     Indication: BREAST DISORDER
     Dosage: 5 MG, DAILY
     Route: 048
     Dates: start: 2000, end: 20150327
  2. ALDACTONE [Suspect]
     Active Substance: SPIRONOLACTONE
     Indication: DIZZINESS
     Dosage: 25 MG, 1X/DAY
     Route: 048
     Dates: start: 201410, end: 20150327
  3. ACETYLLEUCINE [Concomitant]
     Active Substance: ACETYLLEUCINE
     Dosage: 500 MG, 2X/DAY

REACTIONS (2)
  - Meningioma [Not Recovered/Not Resolved]
  - Dizziness [Recovered/Resolved]

NARRATIVE: CASE EVENT DATE: 20150226
